FAERS Safety Report 9269423 (Version 3)
Quarter: 2013Q3

REPORT INFORMATION
  Report Type: Spontaneous
  Country: US (occurrence: US)
  Receive Date: 20130503
  Receipt Date: 20130703
  Transmission Date: 20140515
  Serious: Yes (Hospitalization, Other)
  Sender: FDA-Public Use
  Company Number: US-BAYER-2013-052162

PATIENT
  Age: 19 Year
  Sex: Female
  Weight: 59.41 kg

DRUGS (3)
  1. YAZ [Suspect]
  2. YASMIN [Suspect]
  3. OCELLA [Suspect]

REACTIONS (12)
  - Pulmonary embolism [None]
  - Pelvic venous thrombosis [None]
  - Pelvic venous thrombosis [None]
  - Pulmonary embolism [None]
  - Pulmonary embolism [Recovered/Resolved]
  - Injury [None]
  - Pain [None]
  - General physical health deterioration [None]
  - Anxiety [None]
  - Emotional distress [None]
  - Anhedonia [None]
  - Pain [None]
